FAERS Safety Report 8808476 (Version 2)
Quarter: 2013Q1

REPORT INFORMATION
  Report Type: Spontaneous
  Country: US (occurrence: US)
  Receive Date: 20120926
  Receipt Date: 20130116
  Transmission Date: 20140127
  Serious: Yes (Other)
  Sender: FDA-Public Use
  Company Number: US-BAYER-2012-098376

PATIENT
  Age: 44 Year
  Sex: Female
  Weight: 68.03 kg

DRUGS (3)
  1. YASMIN [Suspect]
     Indication: ACNE
     Dosage: UNK
     Dates: start: 200508, end: 20060315
  2. YASMIN [Suspect]
     Indication: CONTRACEPTION
  3. IBUPROFEN [Concomitant]
     Indication: PAIN
     Dosage: 400 MG 2 X A DAY
     Route: 048

REACTIONS (6)
  - Thrombophlebitis superficial [None]
  - Thrombophlebitis superficial [None]
  - Deep vein thrombosis [None]
  - Injury [None]
  - Pain [None]
  - Pain [None]
